FAERS Safety Report 5734798-7 (Version None)
Quarter: 2008Q2

REPORT INFORMATION
  Report Type: 
  Country: None (occurrence: None)
  Receive Date: 20080512
  Receipt Date: 20080430
  Transmission Date: 20081010
  Serious: Yes (Hospitalization)
  Sender: FDA-Public Use
  Company Number: FR-ROCHE-561831

PATIENT
  Sex: Male

DRUGS (9)
  1. VESANOID [Suspect]
     Route: 048
     Dates: start: 20070706
  2. ALLOPURINOL [Suspect]
     Route: 048
  3. TAHOR [Suspect]
     Dosage: 1 DOSE FORM IN THE EVENING.
     Route: 048
  4. VIDAZA [Suspect]
     Dosage: FORM: INJECTABLE SOLUTION.
     Route: 058
     Dates: start: 20070630
  5. DEPAKENE [Suspect]
     Route: 048
     Dates: start: 20070630
  6. FOLIC ACID [Concomitant]
     Route: 048
  7. ISKEDYL FORT [Concomitant]
     Route: 048
  8. ISKEDYL FORT [Concomitant]
     Route: 048
  9. PERMIXON [Concomitant]
     Dosage: DOSE 160, 1 DOSE FORM EACH IN MORNING AND EVENING

REACTIONS (1)
  - TYPE 1 DIABETES MELLITUS [None]
